FAERS Safety Report 17657263 (Version 1)
Quarter: 2020Q2

REPORT INFORMATION
  Report Type: Report from Study
  Country: CA (occurrence: CA)
  Receive Date: 20200410
  Receipt Date: 20200410
  Transmission Date: 20200713
  Serious: Yes (Other)
  Sender: FDA-Public Use
  Company Number: CA-JNJFOC-20200403384

PATIENT
  Age: 37 Year
  Sex: Female
  Weight: 62.3 kg

DRUGS (1)
  1. REMICADE [Suspect]
     Active Substance: INFLIXIMAB
     Indication: CROHN^S DISEASE
     Route: 042

REACTIONS (4)
  - Nausea [Unknown]
  - Swelling [Unknown]
  - Lupus-like syndrome [Unknown]
  - Headache [Unknown]

NARRATIVE: CASE EVENT DATE: 202001
